FAERS Safety Report 6551973-2 (Version None)
Quarter: 2010Q1

REPORT INFORMATION
  Report Type: 
  Country: None (occurrence: None)
  Receive Date: 20100120
  Receipt Date: 20091104
  Transmission Date: 20100710
  Serious: Yes (Hospitalization)
  Sender: FDA-Public Use
  Company Number: 2009-4550

PATIENT
  Age: 57 Year
  Sex: Male
  Weight: 97 kg

DRUGS (3)
  1. SOMATULINE DEPOT [Suspect]
     Indication: DRUG USE FOR UNKNOWN INDICATION
     Dosage: (120 MG, 1 IN 1 M), INTRAMUSCULAR
     Route: 030
     Dates: start: 20080430
  2. ATENOLOL [Concomitant]
  3. PERINDOPRIL ERBUMINE [Concomitant]

REACTIONS (3)
  - CHOLELITHIASIS [None]
  - PANCREATIC NECROSIS [None]
  - PANCREATITIS [None]
